FAERS Safety Report 24971085 (Version 2)
Quarter: 2025Q3

REPORT INFORMATION
  Report Type: Spontaneous
  Country: US (occurrence: US)
  Receive Date: 20250214
  Receipt Date: 20250905
  Transmission Date: 20251021
  Serious: Yes (Other)
  Sender: DOMPE FARMACEUTICI
  Company Number: US-FARMAPROD-202412-4380

PATIENT
  Age: 66 Year
  Sex: Male

DRUGS (22)
  1. OXERVATE [Suspect]
     Active Substance: CENEGERMIN-BKBJ
     Indication: Neurotrophic keratopathy
     Route: 047
     Dates: start: 20241216, end: 20250108
  2. OXERVATE [Suspect]
     Active Substance: CENEGERMIN-BKBJ
  3. OXERVATE [Suspect]
     Active Substance: CENEGERMIN-BKBJ
     Route: 047
     Dates: start: 20250313
  4. OXERVATE [Suspect]
     Active Substance: CENEGERMIN-BKBJ
  5. OXERVATE [Suspect]
     Active Substance: CENEGERMIN-BKBJ
  6. PREDNISOLONE [Concomitant]
     Active Substance: PREDNISOLONE
  7. VALACYCLOVIR [Concomitant]
     Active Substance: VALACYCLOVIR HYDROCHLORIDE
  8. MULTIVITAMIN 50 PLUS [Concomitant]
  9. TAMSULOSIN HYDROCHLORIDE [Concomitant]
     Active Substance: TAMSULOSIN HYDROCHLORIDE
  10. METFORMIN HYDROCHLORIDE [Concomitant]
     Active Substance: METFORMIN HYDROCHLORIDE
  11. LOSARTAN POTASSIUM [Concomitant]
     Active Substance: LOSARTAN POTASSIUM
  12. PRAVASTATIN SODIUM [Concomitant]
     Active Substance: PRAVASTATIN SODIUM
  13. ROCKLATAN [Concomitant]
     Active Substance: LATANOPROST\NETARSUDIL MESYLATE
  14. ALPHAGAN P [Concomitant]
     Active Substance: BRIMONIDINE TARTRATE
  15. DORZOLAMIDE [Concomitant]
     Active Substance: DORZOLAMIDE
  16. VERAPAMIL HCL [Concomitant]
     Active Substance: VERAPAMIL HYDROCHLORIDE
  17. ERYTHROMYCIN [Concomitant]
     Active Substance: ERYTHROMYCIN
     Route: 061
     Dates: end: 20250108
  18. VALTREX [Concomitant]
     Active Substance: VALACYCLOVIR HYDROCHLORIDE
     Route: 048
  19. PRED FORTE [Concomitant]
     Active Substance: PREDNISOLONE ACETATE
     Route: 061
     Dates: end: 20250108
  20. GATIFLOXACIN [Concomitant]
     Active Substance: GATIFLOXACIN
     Route: 061
     Dates: end: 20250108
  21. POLYMYXIN B SUL-TRIMETHOPRIM [Concomitant]
  22. CEQUA [Concomitant]
     Active Substance: CYCLOSPORINE

REACTIONS (20)
  - Eye infection bacterial [Recovered/Resolved]
  - Therapy interrupted [Unknown]
  - Disease progression [Recovering/Resolving]
  - Eye pain [Not Recovered/Not Resolved]
  - Ocular hyperaemia [Not Recovered/Not Resolved]
  - Lacrimation increased [Not Recovered/Not Resolved]
  - Overdose [Unknown]
  - Medication error [Unknown]
  - Persistent corneal epithelial defect [Not Recovered/Not Resolved]
  - Product dose omission issue [Unknown]
  - Foreign body in eye [Unknown]
  - Eye irritation [Not Recovered/Not Resolved]
  - Eye inflammation [Unknown]
  - Photophobia [Unknown]
  - Dry eye [Unknown]
  - Periorbital inflammation [Unknown]
  - Device use issue [Unknown]
  - Headache [Unknown]
  - Eye swelling [Unknown]
  - Ocular discomfort [Unknown]

NARRATIVE: CASE EVENT DATE: 20250108
